FAERS Safety Report 4861952-9 (Version None)
Quarter: 2005Q4

REPORT INFORMATION
  Report Type: 
  Country: None (occurrence: None)
  Receive Date: 20051130
  Receipt Date: 20050804
  Transmission Date: 20060501
  Serious: Yes (Hospitalization)
  Sender: FDA-Public Use
  Company Number: PHEH2005US08544

PATIENT
  Age: 28 Year
  Sex: Female

DRUGS (2)
  1. LAMISIL [Suspect]
     Indication: NAIL TINEA
     Dosage: 250 MG, QD, ORAL
     Route: 048
     Dates: start: 20050609, end: 20050727
  2. MULTIVITAMINS (ASCORBIC ACID, ERGOCALCIFEROL, FOLIC ACID, NICOTINAMIDE [Concomitant]

REACTIONS (5)
  - ABDOMINAL PAIN [None]
  - HEPATITIS [None]
  - NAUSEA [None]
  - TRANSAMINASES INCREASED [None]
  - VOMITING [None]
